FAERS Safety Report 4434706-5 (Version None)
Quarter: 2004Q3

REPORT INFORMATION
  Report Type: 
  Country: None (occurrence: None)
  Receive Date: 20040827
  Receipt Date: 20040506
  Transmission Date: 20050211
  Serious: No
  Sender: FDA-Public Use
  Company Number: US-BRISTOL-MYERS SQUIBB COMPANY-12580775

PATIENT
  Age: 41 Year
  Sex: Female

DRUGS (9)
  1. DEFINITY [Suspect]
     Indication: ECHOCARDIOGRAM
     Dosage: DOSAGE: 1.5CC
     Route: 042
     Dates: start: 20031107
  2. DEFINITY [Suspect]
     Indication: CHEST PAIN
     Dosage: DOSAGE: 1.5CC
     Route: 042
     Dates: start: 20031107
  3. NITROGLYCERIN [Concomitant]
  4. METOPROLOL TARTRATE [Concomitant]
  5. ASPIRIN [Concomitant]
  6. PANTOPRAZOLE [Concomitant]
  7. ATORVASTATIN [Concomitant]
  8. BUPROPION HCL [Concomitant]
  9. SODIUM CHLORIDE INJ [Concomitant]

REACTIONS (1)
  - BACK PAIN [None]
